FAERS Safety Report 22393857 (Version 1)
Quarter: 2023Q2

REPORT INFORMATION
  Report Type: Spontaneous
  Country: US (occurrence: US)
  Receive Date: 20230601
  Receipt Date: 20230601
  Transmission Date: 20230722
  Serious: Yes (Death, Other)
  Sender: FDA-Public Use
  Company Number: US-AMNEAL PHARMACEUTICALS-2023-AMRX-01907

PATIENT

DRUGS (3)
  1. EMTRICITABINE AND TENOFOVIR DISOPROXIL FUMARATE [Suspect]
     Active Substance: EMTRICITABINE\TENOFOVIR DISOPROXIL FUMARATE
     Indication: Product used for unknown indication
     Dosage: 200 MILLIGRAM, QD
     Route: 064
     Dates: start: 20220809, end: 20230125
  2. RITONAVIR [Suspect]
     Active Substance: RITONAVIR
     Indication: Product used for unknown indication
     Dosage: UNK, QD
     Route: 064
     Dates: start: 20220809, end: 20230105
  3. DARUNAVIR [Suspect]
     Active Substance: DARUNAVIR
     Indication: Product used for unknown indication
     Dosage: 800 MILLIGRAM, QD
     Route: 064
     Dates: start: 20220809, end: 20230125

REACTIONS (2)
  - Death [Fatal]
  - Foetal exposure during pregnancy [Unknown]
